FAERS Safety Report 13722271 (Version 1)
Quarter: 2017Q3

REPORT INFORMATION
  Report Type: Spontaneous
  Country: ES (occurrence: ES)
  Receive Date: 20170706
  Receipt Date: 20170706
  Transmission Date: 20171127
  Serious: Yes (Life-Threatening, Hospitalization, Other)
  Sender: FDA-Public Use
  Company Number: ES-VIIV HEALTHCARE LIMITED-ES2017GSK100265

PATIENT
  Age: 45 Year
  Sex: Male

DRUGS (8)
  1. ISONIAZID. [Concomitant]
     Active Substance: ISONIAZID
  2. 3TC [Suspect]
     Active Substance: LAMIVUDINE
     Indication: HIV INFECTION
     Dosage: UNK
     Dates: start: 201706, end: 20170628
  3. TRIUMEQ [Suspect]
     Active Substance: ABACAVIR SULFATE\DOLUTEGRAVIR SODIUM\LAMIVUDINE
     Indication: HIV INFECTION
     Dosage: UNK
     Dates: start: 20170606, end: 201706
  4. ETHAMBUTOL [Concomitant]
     Active Substance: ETHAMBUTOL HYDROCHLORIDE
  5. ABACAVIR. [Suspect]
     Active Substance: ABACAVIR
     Indication: HIV INFECTION
     Dosage: UNK
     Dates: start: 201706, end: 20170628
  6. RIFAMPICIN [Concomitant]
     Active Substance: RIFAMPIN
  7. DOLUTEGRAVIR [Suspect]
     Active Substance: DOLUTEGRAVIR
     Indication: HIV INFECTION
     Dosage: UNK
     Dates: start: 201706, end: 20170628
  8. SOLTRIM [Suspect]
     Active Substance: SULFAMETHOXAZOLE\TRIMETHOPRIM
     Indication: HIV INFECTION
     Dosage: UNK
     Dates: start: 20170606

REACTIONS (7)
  - Lung disorder [Not Recovered/Not Resolved]
  - Malignant lymphoma unclassifiable high grade [Not Recovered/Not Resolved]
  - Coagulopathy [Unknown]
  - Blood bilirubin increased [Unknown]
  - Hepatotoxicity [Not Recovered/Not Resolved]
  - Renal failure [Not Recovered/Not Resolved]
  - Lymphadenopathy [Unknown]

NARRATIVE: CASE EVENT DATE: 20170617
